FAERS Safety Report 6250327-6 (Version None)
Quarter: 2009Q2

REPORT INFORMATION
  Report Type: 
  Country: None (occurrence: None)
  Receive Date: 20090626
  Receipt Date: 20090626
  Transmission Date: 20091009
  Serious: Yes (Other)
  Sender: FDA-Public Use
  Company Number: None

PATIENT
  Age: 43 Year
  Sex: Female
  Weight: 79.3795 kg

DRUGS (3)
  1. ZICAM SWABS AND NASAL SPRAY REGULAR STRENGTH ZICAM/MATRIXX INITIATIVES [Suspect]
     Indication: NASAL CONGESTION
     Dosage: PUMP ONCE INTO EACH NOSTRIL EVERY 4 HOURS NASAL SWABS. RIGHT INSIDE NOSTRIL EVERY 4 HOURS NASAL THIS
     Route: 045
     Dates: start: 20050216, end: 20050221
  2. ZICAM SWABS AND NASAL SPRAY REGULAR STRENGTH ZICAM/MATRIXX INITIATIVES [Suspect]
     Indication: NASOPHARYNGITIS
     Dosage: PUMP ONCE INTO EACH NOSTRIL EVERY 4 HOURS NASAL SWABS. RIGHT INSIDE NOSTRIL EVERY 4 HOURS NASAL THIS
     Route: 045
     Dates: start: 20050216, end: 20050221
  3. ZICAM SWABS AND NASAL SPRAY REGULAR STRENGTH ZICAM/MATRIXX INITIATIVES [Suspect]
     Indication: SINUS DISORDER
     Dosage: PUMP ONCE INTO EACH NOSTRIL EVERY 4 HOURS NASAL SWABS. RIGHT INSIDE NOSTRIL EVERY 4 HOURS NASAL THIS
     Route: 045
     Dates: start: 20050216, end: 20050221

REACTIONS (2)
  - HYPOGEUSIA [None]
  - HYPOSMIA [None]
